FAERS Safety Report 10219822 (Version 2)
Quarter: 2014Q2

REPORT INFORMATION
  Report Type: Report from Study
  Country: CA (occurrence: CA)
  Receive Date: 20140605
  Receipt Date: 20140622
  Transmission Date: 20141212
  Serious: Yes (Hospitalization, Other)
  Sender: FDA-Public Use
  Company Number: CA-ABBVIE-14K-028-1243250-00

PATIENT
  Age: 64 Year
  Sex: Male
  Weight: 69.01 kg

DRUGS (13)
  1. KALETRA 200/50 [Suspect]
     Indication: ANTIRETROVIRAL THERAPY
     Dates: start: 20031027
  2. KALETRA 200/50 [Suspect]
     Dates: start: 20070401, end: 20090601
  3. KALETRA 200/50 [Suspect]
     Dosage: 200/50 MG
     Route: 048
     Dates: start: 20140430
  4. KIVEXA [Suspect]
     Indication: HIV INFECTION
     Dosage: 600/300 MG
     Route: 048
     Dates: start: 2014
  5. PREZISTA [Suspect]
     Indication: PRODUCT USED FOR UNKNOWN INDICATION
     Dates: start: 2014
  6. TRUVADA [Suspect]
     Indication: PRODUCT USED FOR UNKNOWN INDICATION
     Dates: start: 20070401, end: 20090601
  7. TRUVADA [Suspect]
     Dates: start: 2014
  8. AMLODIPINE [Concomitant]
     Indication: PRODUCT USED FOR UNKNOWN INDICATION
     Route: 048
  9. APO LEVETIRACETAM [Concomitant]
     Indication: PRODUCT USED FOR UNKNOWN INDICATION
     Route: 048
  10. AZITHROMYCIN [Concomitant]
     Indication: PRODUCT USED FOR UNKNOWN INDICATION
     Route: 048
  11. BICALUTAMIDE [Concomitant]
     Indication: PRODUCT USED FOR UNKNOWN INDICATION
     Route: 048
  12. ZERIT [Concomitant]
     Indication: PRODUCT USED FOR UNKNOWN INDICATION
     Dates: start: 20031027
  13. 3TC [Concomitant]
     Indication: PRODUCT USED FOR UNKNOWN INDICATION
     Dates: start: 20031027

REACTIONS (17)
  - Fall [Unknown]
  - Loss of consciousness [Unknown]
  - Amnesia [Unknown]
  - Epilepsy [Unknown]
  - Cerebrovascular accident [Unknown]
  - Central nervous system lesion [Unknown]
  - Prostate cancer [Recovering/Resolving]
  - Appendicitis [Unknown]
  - Convulsion [Recovered/Resolved]
  - Syncope [Unknown]
  - Balance disorder [Unknown]
  - Skin plaque [Unknown]
  - Scar [Unknown]
  - Renal impairment [Unknown]
  - Pruritus generalised [Unknown]
  - Fatigue [Unknown]
  - Arteriosclerosis [Unknown]
